FAERS Safety Report 13322660 (Version 1)
Quarter: 2017Q1

REPORT INFORMATION
  Report Type: Spontaneous
  Country: US (occurrence: US)
  Receive Date: 20170310
  Receipt Date: 20170310
  Transmission Date: 20170428
  Serious: Yes (Other)
  Sender: FDA-Public Use
  Company Number: US-BRISTOL-MYERS SQUIBB COMPANY-BMS-2017-019787

PATIENT
  Sex: Male

DRUGS (3)
  1. ABILIFY [Suspect]
     Active Substance: ARIPIPRAZOLE
     Indication: PSYCHOTIC DISORDER
     Route: 065
  2. VRAYLAR [Concomitant]
     Active Substance: CARIPRAZINE
     Indication: PSYCHOTIC DISORDER
     Route: 065
  3. GEODON [Suspect]
     Active Substance: ZIPRASIDONE HYDROCHLORIDE\ZIPRASIDONE MESYLATE
     Indication: PSYCHOTIC DISORDER
     Route: 065

REACTIONS (7)
  - Groin abscess [Unknown]
  - Cyst [Unknown]
  - Acne [Unknown]
  - Folliculitis [Unknown]
  - Product use issue [Unknown]
  - Scrotal abscess [Unknown]
  - Pruritus [Unknown]
